FAERS Safety Report 19861686 (Version 1)
Quarter: 2021Q3

REPORT INFORMATION
  Report Type: Spontaneous
  Country: US (occurrence: US)
  Receive Date: 20210918
  Receipt Date: 20210918
  Transmission Date: 20211014
  Serious: No
  Sender: FDA-Public Use
  Company Number: None

PATIENT
  Sex: Female
  Weight: 63.04 kg

DRUGS (6)
  1. DOXIL [Suspect]
     Active Substance: DOXORUBICIN HYDROCHLORIDE
     Dates: end: 20210722
  2. BEVACIZUMAB (RHUMAB VEGF) [Suspect]
     Active Substance: BEVACIZUMAB
     Dates: end: 20210722
  3. LISINOPRIL. [Concomitant]
     Active Substance: LISINOPRIL
  4. MAGIC MOUTH WASH [Concomitant]
     Active Substance: ALUMINUM HYDROXIDE\DIMETHICONE\DIPHENHYDRAMINE\LIDOCAINE\MAGNESIUM HYDROXIDE
  5. ACYCLOVIR. [Concomitant]
     Active Substance: ACYCLOVIR
  6. MORPHINE SULFATE ELIXIR [Concomitant]

REACTIONS (5)
  - Intestinal perforation [None]
  - Mucosal inflammation [None]
  - Peritoneal fluid analysis abnormal [None]
  - Condition aggravated [None]
  - Waist circumference increased [None]

NARRATIVE: CASE EVENT DATE: 20210826
